FAERS Safety Report 20017989 (Version 1)
Quarter: 2021Q4

REPORT INFORMATION
  Report Type: Spontaneous
  Country: US (occurrence: US)
  Receive Date: 20211101
  Receipt Date: 20211101
  Transmission Date: 20220303
  Serious: Yes (Hospitalization)
  Sender: FDA-Public Use
  Company Number: US-APOLLO PHARMACEUTICALS-2021-APO-000016

PATIENT
  Age: 33 Year
  Sex: Female

DRUGS (5)
  1. PHENYLEPHRINE HYDROCHLORIDE [Suspect]
     Active Substance: PHENYLEPHRINE HYDROCHLORIDE
     Indication: Blood pressure management
  2. HUMAN RED BLOOD CELL [Concomitant]
     Active Substance: HUMAN RED BLOOD CELL
     Indication: Product used for unknown indication
     Dosage: THROUGH AN 18-GAUGE PERIPHERAL IV CATHETER IN HER LEFT HAND
     Route: 042
  3. HUMAN RED BLOOD CELL [Concomitant]
     Active Substance: HUMAN RED BLOOD CELL
     Dosage: 2 UNITS
  4. PLASMA, FRESH FROZEN [Concomitant]
     Active Substance: HUMAN PLASMA
     Indication: Product used for unknown indication
  5. PLATELETS [Concomitant]
     Active Substance: HUMAN PLATELET, ALLOGENIC
     Indication: Product used for unknown indication
     Dosage: 1 UNIT

REACTIONS (4)
  - Compartment syndrome [Recovering/Resolving]
  - Peripheral coldness [Recovering/Resolving]
  - Ischaemia [Recovering/Resolving]
  - Oedema [Recovering/Resolving]
